FAERS Safety Report 8967816 (Version 2)
Quarter: 2013Q2

REPORT INFORMATION
  Report Type: Spontaneous
  Country: US (occurrence: None)
  Receive Date: 20121210
  Receipt Date: 20130624
  Transmission Date: 20140414
  Serious: Yes (Hospitalization)
  Sender: FDA-Public Use
  Company Number: 142510

PATIENT
  Age: 56 Year
  Sex: Male
  Weight: 81 kg

DRUGS (1)
  1. LEUCOVORIN [Suspect]
     Indication: COLORECTAL CANCER
     Dates: start: 20120706, end: 20121029

REACTIONS (4)
  - Interstitial lung disease [None]
  - Haemoglobin decreased [None]
  - Malaise [None]
  - Intestinal obstruction [None]
